FAERS Safety Report 14626194 (Version 1)
Quarter: 2018Q1

REPORT INFORMATION
  Report Type: Spontaneous
  Country: PT (occurrence: PT)
  Receive Date: 20180312
  Receipt Date: 20180312
  Transmission Date: 20180509
  Serious: Yes (Other)
  Sender: FDA-Public Use
  Company Number: PT-TEVA-2018-PT-865202

PATIENT
  Age: 27 Year
  Sex: Male

DRUGS (3)
  1. DOXORRUBICIN [Concomitant]
     Active Substance: DOXORUBICIN
  2. VINCRISTIN [Concomitant]
     Active Substance: VINCRISTINE
  3. METOTREXATO TEVA 100 MG/ML SOLU??O INJECT?VEL [Suspect]
     Active Substance: METHOTREXATE
     Route: 042

REACTIONS (3)
  - Dyspnoea [Unknown]
  - Oedema [Unknown]
  - Dermatitis allergic [Unknown]
